FAERS Safety Report 5194696-7 (Version None)
Quarter: 2006Q4

REPORT INFORMATION
  Report Type: 
  Country: None (occurrence: None)
  Receive Date: 20061229
  Receipt Date: 20061221
  Transmission Date: 20070319
  Serious: Yes (Other)
  Sender: FDA-Public Use
  Company Number: US-JNJFOC-20061206326

PATIENT
  Sex: Male

DRUGS (5)
  1. INFLIXIMAB [Suspect]
     Indication: RHEUMATOID ARTHRITIS
  2. LISINOPRIL [Concomitant]
  3. METHOTREXATE [Concomitant]
  4. ZANTAC [Concomitant]
  5. TYLENOL [Concomitant]

REACTIONS (1)
  - MALIGNANT MELANOMA [None]
